FAERS Safety Report 16264823 (Version 2)
Quarter: 2019Q2

REPORT INFORMATION
  Report Type: Spontaneous
  Country: US (occurrence: US)
  Receive Date: 20190502
  Receipt Date: 20190513
  Transmission Date: 20190711
  Serious: No
  Sender: FDA-Public Use
  Company Number: US-TEVA-2019-US-1043891

PATIENT
  Sex: Female

DRUGS (1)
  1. TEMAZEPAM TEVA [Suspect]
     Active Substance: TEMAZEPAM
     Route: 065

REACTIONS (2)
  - Adverse drug reaction [Unknown]
  - Product substitution issue [Unknown]
